FAERS Safety Report 9667961 (Version 2)
Quarter: 2014Q1

REPORT INFORMATION
  Report Type: Spontaneous
  Country: US (occurrence: US)
  Receive Date: 20131104
  Receipt Date: 20140206
  Transmission Date: 20141002
  Serious: Yes (Hospitalization, Disabling)
  Sender: FDA-Public Use
  Company Number: US-GLAXOSMITHKLINE-A1047307A

PATIENT
  Age: 67 Year
  Sex: Female

DRUGS (11)
  1. ADVAIR [Suspect]
     Indication: CHRONIC OBSTRUCTIVE PULMONARY DISEASE
     Dosage: 1PUFF TWICE PER DAY
     Route: 055
     Dates: start: 2006
  2. SPIRIVA [Concomitant]
  3. LISINOPRIL [Concomitant]
  4. LEVOTHYROXINE [Concomitant]
  5. UNSPECIFIED [Concomitant]
  6. ASPIRIN [Concomitant]
  7. CENTRUM SILVER [Concomitant]
  8. HYDROCODONE/APAP [Concomitant]
  9. ALEVE [Concomitant]
  10. IRON [Concomitant]
  11. OXYGEN [Concomitant]

REACTIONS (4)
  - Lung neoplasm malignant [Recovering/Resolving]
  - Lung lobectomy [Recovering/Resolving]
  - Radiotherapy [Recovering/Resolving]
  - Incorrect dosage administered [Recovering/Resolving]
